APPROVED DRUG PRODUCT: THEROXIDIL
Active Ingredient: MINOXIDIL
Strength: 5%
Dosage Form/Route: SOLUTION;TOPICAL
Application: A076239 | Product #001
Applicant: PURE SOURCE LLC
Approved: Aug 24, 2004 | RLD: No | RS: No | Type: OTC